FAERS Safety Report 14618122 (Version 1)
Quarter: 2018Q1

REPORT INFORMATION
  Report Type: Spontaneous
  Country: US (occurrence: US)
  Receive Date: 20180309
  Receipt Date: 20180309
  Transmission Date: 20180509
  Serious: No
  Sender: FDA-Public Use
  Company Number: US-PTC THERAPEUTICS, INC.-US-2017PTC001586

PATIENT

DRUGS (1)
  1. EMFLAZA [Suspect]
     Active Substance: DEFLAZACORT
     Indication: DUCHENNE MUSCULAR DYSTROPHY
     Dosage: 66 MG, QD
     Route: 048
     Dates: start: 20171122, end: 20171220

REACTIONS (2)
  - Dermatitis contact [Unknown]
  - Rash [Unknown]

NARRATIVE: CASE EVENT DATE: 20171215
